FAERS Safety Report 17284744 (Version 1)
Quarter: 2020Q1

REPORT INFORMATION
  Report Type: Spontaneous
  Country: CA (occurrence: CA)
  Receive Date: 20200117
  Receipt Date: 20200117
  Transmission Date: 20200409
  Serious: Yes (Other)
  Sender: FDA-Public Use
  Company Number: CA-JACOBUS PHARMACEUTICAL COMPANY, INC.-2079142

PATIENT
  Age: 51 Year
  Sex: Female

DRUGS (2)
  1. OCRELIZUMAB. [Suspect]
     Active Substance: OCRELIZUMAB
     Route: 042
  2. DAPSONE. [Suspect]
     Active Substance: DAPSONE

REACTIONS (5)
  - Anaemia [None]
  - Platelet morphology abnormal [None]
  - Vitamin B12 deficiency [None]
  - Haemorrhage [None]
  - Macrocytosis [None]
